FAERS Safety Report 7523942-7 (Version None)
Quarter: 2011Q2

REPORT INFORMATION
  Report Type: 
  Country: None (occurrence: None)
  Receive Date: 20110603
  Receipt Date: 20110527
  Transmission Date: 20111010
  Serious: Yes (Other)
  Sender: FDA-Public Use
  Company Number: JP-AMGEN-JPNSP2011021615

PATIENT
  Age: 68 Year
  Sex: Female

DRUGS (4)
  1. SENNARIDE [Concomitant]
     Indication: CONSTIPATION
     Dosage: UNK
     Dates: start: 20110419
  2. NEW LECICARBON [Concomitant]
     Indication: CONSTIPATION
     Dosage: UNK
     Dates: start: 20110419
  3. ENBREL [Suspect]
     Indication: RHEUMATOID ARTHRITIS
     Dosage: 50 MG, WEEKLY
     Route: 058
     Dates: start: 20070601
  4. MAGNESIUM OXIDE HEAVY [Concomitant]
     Indication: CONSTIPATION
     Dosage: UNK
     Dates: start: 20110419

REACTIONS (1)
  - RHEUMATOID ARTHRITIS [None]
